FAERS Safety Report 6511332-5 (Version None)
Quarter: 2009Q4

REPORT INFORMATION
  Report Type: 
  Country: None (occurrence: None)
  Receive Date: 20091222
  Receipt Date: 20090420
  Transmission Date: 20100525
  Serious: No
  Sender: FDA-Public Use
  Company Number: US-ASTRAZENECA-2009UW08077

PATIENT
  Age: 75 Year
  Sex: Male
  Weight: 90.7 kg

DRUGS (13)
  1. CRESTOR [Suspect]
     Indication: BLOOD CHOLESTEROL INCREASED
     Route: 048
     Dates: start: 20090311, end: 20090330
  2. CRESTOR [Suspect]
     Route: 048
     Dates: start: 20090328
  3. NIACIN [Suspect]
  4. COQ10 [Concomitant]
  5. SOYBEAN LICETHIN GRANULES [Concomitant]
  6. CALCIUM [Concomitant]
  7. GLUCOSAMINE [Concomitant]
  8. CHONDROITIN [Concomitant]
  9. LOVAZA [Concomitant]
  10. FLAX SEED [Concomitant]
  11. MULTI-VITAMINS [Concomitant]
  12. GINGO-BOLIMA [Concomitant]
  13. SAME [Concomitant]

REACTIONS (3)
  - BACK PAIN [None]
  - DIZZINESS [None]
  - MYALGIA [None]
